FAERS Safety Report 4635773-6 (Version None)
Quarter: 2005Q2

REPORT INFORMATION
  Report Type: 
  Country: None (occurrence: None)
  Receive Date: 20050413
  Receipt Date: 20050331
  Transmission Date: 20051028
  Serious: Yes (Hospitalization, Other)
  Sender: FDA-Public Use
  Company Number: 2005054319

PATIENT
  Age: 31 Year
  Sex: Female

DRUGS (4)
  1. VALDECOXIB [Suspect]
     Indication: PAIN
     Dosage: 20 MG (1 D)
  2. OFLOXACIN [Suspect]
     Indication: PYELONEPHRITIS ACUTE
     Dosage: 1 D
  3. CEFTIBUTEN (CEFTIBUTEN) [Suspect]
     Indication: PYELONEPHRITIS ACUTE
  4. RINGER-LACTATE SOLUTION  ^FRESENIUS^ (CALCIUM CHLORIDE DIHYDRATE, POTA [Concomitant]

REACTIONS (22)
  - ABDOMINAL PAIN [None]
  - ANURIA [None]
  - AZOTAEMIA [None]
  - BACTERIA URINE IDENTIFIED [None]
  - C-REACTIVE PROTEIN INCREASED [None]
  - FLANK PAIN [None]
  - FLUID OVERLOAD [None]
  - HAEMODIALYSIS [None]
  - LABORATORY TEST ABNORMAL [None]
  - LEUKOCYTOSIS [None]
  - METABOLIC ACIDOSIS [None]
  - PAIN [None]
  - PERICARDIAL EFFUSION [None]
  - PLEURAL EFFUSION [None]
  - PYELONEPHRITIS ACUTE [None]
  - RED BLOOD CELLS URINE POSITIVE [None]
  - RENAL DISORDER [None]
  - RENAL FAILURE ACUTE [None]
  - SOMNOLENCE [None]
  - ULTRASOUND ABDOMEN ABNORMAL [None]
  - URINARY SEDIMENT ABNORMAL [None]
  - WHITE BLOOD CELLS URINE POSITIVE [None]
